FAERS Safety Report 14263023 (Version 1)
Quarter: 2017Q4

REPORT INFORMATION
  Report Type: Report from Study
  Country: None (occurrence: CA)
  Receive Date: 20171208
  Receipt Date: 20171208
  Transmission Date: 20180321
  Serious: Yes (Other)
  Sender: FDA-Public Use
  Company Number: CA-ABBVIE-13P-028-1074650-00

PATIENT
  Sex: Female
  Weight: 54.48 kg

DRUGS (5)
  1. IMURAN [Concomitant]
     Active Substance: AZATHIOPRINE
     Indication: PRODUCT USED FOR UNKNOWN INDICATION
  2. HUMIRA [Suspect]
     Active Substance: ADALIMUMAB
     Route: 058
  3. ALYSENA [Concomitant]
     Indication: CONTRACEPTION
     Dosage: 0.21MG/0.02MG
     Route: 048
     Dates: start: 2011
  4. FLAGYL [Suspect]
     Active Substance: METRONIDAZOLE\METRONIDAZOLE HYDROCHLORIDE
     Indication: ABSCESS
     Route: 048
     Dates: start: 201301, end: 201301
  5. HUMIRA [Suspect]
     Active Substance: ADALIMUMAB
     Indication: CROHN^S DISEASE
     Route: 058
     Dates: start: 20071218

REACTIONS (6)
  - Anorectal disorder [Unknown]
  - Abscess [Recovering/Resolving]
  - Crohn^s disease [Unknown]
  - Drug effect incomplete [Unknown]
  - Diarrhoea [Unknown]
  - Abscess [Recovering/Resolving]

NARRATIVE: CASE EVENT DATE: 2011
